FAERS Safety Report 10732560 (Version 2)
Quarter: 2015Q1

REPORT INFORMATION
  Report Type: Spontaneous
  Country: US (occurrence: US)
  Receive Date: 20150123
  Receipt Date: 20150129
  Transmission Date: 20150721
  Serious: No
  Sender: FDA-Public Use
  Company Number: US-ASTRAZENECA-2015SE06386

PATIENT
  Sex: Male

DRUGS (2)
  1. BUMETANIDE. [Interacting]
     Active Substance: BUMETANIDE
     Indication: DIURETIC THERAPY
     Route: 065
  2. NEXIUM 24HR [Suspect]
     Active Substance: ESOMEPRAZOLE MAGNESIUM
     Route: 048

REACTIONS (3)
  - Fluid retention [Unknown]
  - Drug effect incomplete [Unknown]
  - Drug interaction [Unknown]
